FAERS Safety Report 7226692-X (Version None)
Quarter: 2011Q1

REPORT INFORMATION
  Report Type: 
  Country: None (occurrence: None)
  Receive Date: 20110114
  Receipt Date: 20110110
  Transmission Date: 20110831
  Serious: Yes (Hospitalization, Other)
  Sender: FDA-Public Use
  Company Number: FR-BRISTOL-MYERS SQUIBB COMPANY-15481534

PATIENT
  Age: 86 Year
  Sex: Male

DRUGS (7)
  1. APROVEL TABS 150 MG [Suspect]
     Dosage: TABS
     Route: 048
     Dates: start: 20101109
  2. EFFERALGAN [Concomitant]
  3. GLYBURIDE [Concomitant]
  4. LANTUS [Concomitant]
     Dosage: 1DF=4UNITS. IN EVENING
  5. GLUCOR [Concomitant]
  6. ASPIRIN [Concomitant]
  7. NITROGLYCERIN [Concomitant]

REACTIONS (17)
  - ATRIOVENTRICULAR BLOCK FIRST DEGREE [None]
  - RALES [None]
  - BUNDLE BRANCH BLOCK LEFT [None]
  - BLOOD PRESSURE IMMEASURABLE [None]
  - AGGRESSION [None]
  - COGNITIVE DISORDER [None]
  - BUNDLE BRANCH BLOCK RIGHT [None]
  - AGITATION [None]
  - SOMNOLENCE [None]
  - ACUTE CORONARY SYNDROME [None]
  - HYDROCEPHALUS [None]
  - ATAXIA [None]
  - LOW CARDIAC OUTPUT SYNDROME [None]
  - CONFUSIONAL STATE [None]
  - CEREBRAL CALCIFICATION [None]
  - VENTRICULAR HYPOKINESIA [None]
  - MICTURITION DISORDER [None]
